FAERS Safety Report 7091336-7 (Version None)
Quarter: 2010Q4

REPORT INFORMATION
  Report Type: 
  Country: None (occurrence: None)
  Receive Date: 20101109
  Receipt Date: 20101104
  Transmission Date: 20110411
  Serious: Yes (Hospitalization)
  Sender: FDA-Public Use
  Company Number: A0774399A

PATIENT
  Age: 46 Year
  Sex: Male

DRUGS (9)
  1. AVANDIA [Suspect]
     Indication: TYPE 2 DIABETES MELLITUS
     Dosage: 8MG PER DAY
     Route: 048
     Dates: start: 20050201, end: 20070413
  2. AVANDAMET [Suspect]
     Indication: TYPE 2 DIABETES MELLITUS
     Route: 048
  3. GLYBURIDE [Concomitant]
  4. METFORMIN [Concomitant]
     Dates: end: 20061105
  5. MICRONASE [Concomitant]
  6. ZOLOFT [Concomitant]
  7. PRINIVIL [Concomitant]
  8. LIPITOR [Concomitant]
  9. CIALIS [Concomitant]

REACTIONS (5)
  - ACUTE MYOCARDIAL INFARCTION [None]
  - ARTERIOSCLEROSIS CORONARY ARTERY [None]
  - MYOCARDIAL ISCHAEMIA [None]
  - PERICARDITIS [None]
  - POST PROCEDURAL COMPLICATION [None]
